FAERS Safety Report 18387443 (Version 4)
Quarter: 2020Q4

REPORT INFORMATION
  Report Type: Report from Study
  Country: US (occurrence: US)
  Receive Date: 20201015
  Receipt Date: 20201016
  Transmission Date: 20210114
  Serious: Yes (Other)
  Sender: FDA-Public Use
  Company Number: NVSC2020US267294

PATIENT
  Sex: Female

DRUGS (1)
  1. GLATOPA [Suspect]
     Active Substance: GLATIRAMER ACETATE
     Indication: MULTIPLE SCLEROSIS
     Dosage: 40 MG, TIW
     Route: 065

REACTIONS (6)
  - Speech disorder [Unknown]
  - Tremor [Unknown]
  - Gait disturbance [Unknown]
  - Asphyxia [Unknown]
  - Cognitive disorder [Unknown]
  - Progressive multiple sclerosis [Unknown]
